FAERS Safety Report 15770843 (Version 11)
Quarter: 2024Q2

REPORT INFORMATION
  Report Type: Report from Study
  Country: DK (occurrence: DK)
  Receive Date: 20181228
  Receipt Date: 20240628
  Transmission Date: 20240716
  Serious: Yes (Hospitalization)
  Sender: FDA-Public Use
  Company Number: DK-JNJFOC-20181227466

PATIENT
  Age: 13 Year
  Sex: Female
  Weight: 52.6 kg

DRUGS (7)
  1. REMICADE [Suspect]
     Active Substance: INFLIXIMAB
     Indication: Crohn^s disease
     Route: 041
     Dates: start: 20070907, end: 20150824
  2. REMICADE [Suspect]
     Active Substance: INFLIXIMAB
     Route: 041
     Dates: start: 20070907, end: 20120305
  3. REMICADE [Suspect]
     Active Substance: INFLIXIMAB
     Route: 041
     Dates: start: 20120402, end: 20150220
  4. REMICADE [Suspect]
     Active Substance: INFLIXIMAB
     Route: 041
     Dates: start: 20150327, end: 20150504
  5. REMICADE [Suspect]
     Active Substance: INFLIXIMAB
     Route: 041
     Dates: start: 20150608, end: 20150713
  6. HUMIRA [Concomitant]
     Active Substance: ADALIMUMAB
     Route: 065
     Dates: start: 20161004
  7. AZATHIOPRINE [Concomitant]
     Active Substance: AZATHIOPRINE
     Route: 065
     Dates: end: 201811

REACTIONS (6)
  - Facial operation [Recovered/Resolved]
  - Constipation [Recovered/Resolved]
  - Mastication disorder [Recovered/Resolved]
  - Facial nerve disorder [Recovered/Resolved]
  - Oedema genital [Recovered/Resolved]
  - Tinea versicolour [Recovered/Resolved]

NARRATIVE: CASE EVENT DATE: 20181012
